FAERS Safety Report 24284459 (Version 3)
Quarter: 2024Q4

REPORT INFORMATION
  Report Type: Spontaneous
  Country: US (occurrence: US)
  Receive Date: 20240905
  Receipt Date: 20241007
  Transmission Date: 20250115
  Serious: No
  Sender: BOEHRINGER INGELHEIM
  Company Number: US-Komodo Health-a23aa000002yM69AAE

PATIENT
  Age: 62 Year
  Sex: Female

DRUGS (1)
  1. COMBIVENT RESPIMAT [Suspect]
     Active Substance: ALBUTEROL SULFATE\IPRATROPIUM BROMIDE
     Indication: Chronic obstructive pulmonary disease
     Dosage: ONE PUFF AS NEEDED

REACTIONS (2)
  - Dyspnoea [Recovering/Resolving]
  - Product delivery mechanism issue [Unknown]

NARRATIVE: CASE EVENT DATE: 20240801
